FAERS Safety Report 5836106-X (Version None)
Quarter: 2008Q3

REPORT INFORMATION
  Report Type: 
  Country: None (occurrence: None)
  Receive Date: 20080806
  Receipt Date: 20080730
  Transmission Date: 20090109
  Serious: Yes (Other)
  Sender: FDA-Public Use
  Company Number: GB-PFIZER INC-2008064502

PATIENT
  Sex: Male

DRUGS (2)
  1. LYRICA [Suspect]
     Indication: SPINAL COLUMN STENOSIS
     Route: 048
  2. TRAMADOL HYDROCHLORIDE [Suspect]

REACTIONS (5)
  - DIZZINESS [None]
  - HYPERHIDROSIS [None]
  - PAIN [None]
  - PRESYNCOPE [None]
  - TACHYCARDIA [None]
